FAERS Safety Report 15858413 (Version 1)
Quarter: 2019Q1

REPORT INFORMATION
  Report Type: Spontaneous
  Country: US (occurrence: US)
  Receive Date: 20190123
  Receipt Date: 20190123
  Transmission Date: 20190417
  Serious: Yes (Death, Congenital Anomaly)
  Sender: FDA-Public Use
  Company Number: None

PATIENT
  Age: 71 Year
  Sex: Male

DRUGS (6)
  1. LEVOTHYROXINE SODIUM. [Concomitant]
     Active Substance: LEVOTHYROXINE SODIUM
  2. BYSTOLIC [Concomitant]
     Active Substance: NEBIVOLOL HYDROCHLORIDE
  3. LEUCOVORIN. [Suspect]
     Active Substance: LEUCOVORIN
     Indication: HEAD AND NECK CANCER
     Dosage: ?          OTHER FREQUENCY:INFUSE 1000MG INTR;?
     Route: 042
  4. NYSTATIN. [Concomitant]
     Active Substance: NYSTATIN
  5. HYDROCODONE ACETAMINIOPHEN [Concomitant]
  6. FUROSEMIDE. [Concomitant]
     Active Substance: FUROSEMIDE

REACTIONS (1)
  - Death [None]

NARRATIVE: CASE EVENT DATE: 20190122
